FAERS Safety Report 20621210 (Version 2)
Quarter: 2022Q1

REPORT INFORMATION
  Report Type: Report from Study
  Country: CN (occurrence: None)
  Receive Date: 20220322
  Receipt Date: 20220331
  Transmission Date: 20220423
  Serious: Yes (Hospitalization)
  Sender: FDA-Public Use
  Company Number: CN-ROCHE-3050012

PATIENT
  Age: 38 Year
  Sex: Male
  Weight: 67.5 kg

DRUGS (9)
  1. FARICIMAB [Suspect]
     Active Substance: FARICIMAB
     Indication: Macular oedema
     Dosage: START DATE OF MOST RECENT DOSE OF STUDY DRUG PRIOR TO AE : 10-FEB-2022 12:47 PM
     Route: 050
     Dates: start: 20210827
  2. FARICIMAB [Suspect]
     Active Substance: FARICIMAB
     Indication: Retinal vein occlusion
  3. PLACEBO [Suspect]
     Active Substance: UNSPECIFIED INGREDIENT
     Indication: Macular oedema
     Dosage: START DATE OF MOST RECENT DOSE OF STUDY DRUG PRIOR TO AE : 10-FEB-2022 12:47 PM
     Route: 050
     Dates: start: 20210827
  4. PLACEBO [Suspect]
     Active Substance: UNSPECIFIED INGREDIENT
     Indication: Retinal vein occlusion
  5. DYCLONINE HYDROCHLORIDE [Concomitant]
     Active Substance: DYCLONINE HYDROCHLORIDE
     Indication: Analgesic therapy
     Route: 048
     Dates: start: 20220312, end: 20220312
  6. BUTORPHANOL TARTRATE [Concomitant]
     Active Substance: BUTORPHANOL TARTRATE
     Indication: Analgesic therapy
     Route: 030
     Dates: start: 20220315, end: 20220315
  7. ETOMIDATE [Concomitant]
     Active Substance: ETOMIDATE
     Indication: Anaesthesia
     Route: 042
     Dates: start: 20220315, end: 20220315
  8. PROPOFOL MEDIUM AND LONG CHAIN FAT EMULSION [Concomitant]
     Indication: Anaesthesia
     Route: 042
     Dates: start: 20220315, end: 20220315
  9. PROPOFOL [Concomitant]
     Active Substance: PROPOFOL
     Indication: Anaesthesia
     Route: 042
     Dates: start: 20220315, end: 20220315

REACTIONS (3)
  - Duodenal ulcer haemorrhage [Recovered/Resolved]
  - Blood loss anaemia [Recovered/Resolved]
  - Anaemia [Recovered/Resolved]

NARRATIVE: CASE EVENT DATE: 20220307
